FAERS Safety Report 8348920 (Version 2)
Quarter: 2012Q4

REPORT INFORMATION
  Report Type: Report from Study
  Country: IT (occurrence: IT)
  Receive Date: 20120123
  Receipt Date: 20120904
  Transmission Date: 20130627
  Serious: Yes (Hospitalization)
  Sender: FDA-Public Use
  Company Number: IT-CELGENEUS-083-21880-11123585

PATIENT
  Age: 61 Year
  Sex: Male
  Weight: 82 kg

DRUGS (15)
  1. REVLIMID [Suspect]
     Indication: MYELOMA RECURRENCE
     Dosage: 25 Milligram
     Route: 048
     Dates: start: 20111130, end: 20111220
  2. REVLIMID [Suspect]
     Dosage: 25 Milligram
     Route: 048
     Dates: start: 20120109, end: 20120129
  3. CARFILZOMIB [Suspect]
     Indication: MYELOMA RECURRENCE
     Dosage: 40 Milligram
     Route: 041
     Dates: start: 20111130, end: 20111201
  4. CARFILZOMIB [Suspect]
     Dosage: 54 Milligram
     Route: 041
     Dates: start: 20111206, end: 20111215
  5. CARFILZOMIB [Suspect]
     Dosage: 54 Milligram
     Route: 065
     Dates: start: 20120109, end: 20120124
  6. DEXAMETHASONE [Suspect]
     Indication: MYELOMA RECURRENCE
     Dosage: 40 Milligram
     Route: 048
     Dates: start: 20111130, end: 20111221
  7. DEXAMETHASONE [Suspect]
     Dosage: 40 Milligram
     Route: 048
     Dates: start: 20120109, end: 20120123
  8. ASPIRINETTA [Concomitant]
     Indication: ANTICOAGULANT THERAPY
     Dosage: 100 Milligram
     Route: 048
     Dates: start: 20111128, end: 20120305
  9. ASPIRINETTA [Concomitant]
     Indication: ANTIPLATELET THERAPY
  10. CIPROXIN [Concomitant]
     Indication: ANTIBIOTIC PROPHYLAXIS
     Dosage: 500 Milligram
     Route: 048
     Dates: start: 20111128
  11. LANSOPRAZOL [Concomitant]
     Indication: GASTRITIS PROPHYLAXIS
     Dosage: 15 Milligram
     Route: 048
     Dates: start: 20111128
  12. VALACICLOVIR [Concomitant]
     Indication: ANTIVIRAL PROPHYLAXIS
     Dosage: 500 Milligram
     Route: 048
     Dates: start: 20111128
  13. ZIRTEC [Concomitant]
     Indication: ITCHY SCALP
     Dosage: 10 Milligram
     Route: 048
     Dates: start: 20111206, end: 20111207
  14. ZOMETA [Concomitant]
     Indication: BONE DISORDER (NOS)
     Route: 041
     Dates: start: 20111114
  15. BRONCOVALEAS [Concomitant]
     Indication: PNEUMOPATHY
     Dosage: 2500 Microgram
     Route: 055
     Dates: start: 20111126, end: 20111230

REACTIONS (1)
  - Pneumonia [Recovered/Resolved]
